FAERS Safety Report 7479438-4 (Version None)
Quarter: 2011Q2

REPORT INFORMATION
  Report Type: 
  Country: None (occurrence: None)
  Receive Date: 20110513
  Receipt Date: 20110510
  Transmission Date: 20111010
  Serious: Yes (Other)
  Sender: FDA-Public Use
  Company Number: BR-PFIZER INC-2010127626

PATIENT
  Age: 60 Year
  Sex: Female
  Weight: 80 kg

DRUGS (7)
  1. OLMESARTAN MEDOXOMIL [Concomitant]
     Indication: HYPERTENSION
     Dosage: UNK
     Dates: start: 20090101
  2. PANTOPRAZOLE [Concomitant]
     Indication: REFLUX GASTRITIS
     Dosage: UNK
     Dates: start: 20100101
  3. OLMESARTAN MEDOXOMIL AND HYDROCHLOROTHIZIDE [Concomitant]
     Indication: HYPERTENSION
     Dosage: UNK
  4. LIPITOR [Suspect]
     Indication: BLOOD CHOLESTEROL INCREASED
     Dosage: 40 MG, 1X/DAY
     Route: 048
     Dates: start: 20090101, end: 20110426
  5. CONDROFLEX [Concomitant]
     Dosage: UNK
     Dates: start: 20080101
  6. CALCIUM CARBONATE [Concomitant]
     Indication: OSTEOPENIA
     Dosage: UNK
     Dates: start: 19960101
  7. NEXIUM [Concomitant]
     Indication: REFLUX OESOPHAGITIS
     Dosage: UNK

REACTIONS (2)
  - INCREASED APPETITE [None]
  - WEIGHT INCREASED [None]
